FAERS Safety Report 16182581 (Version 2)
Quarter: 2019Q2

REPORT INFORMATION
  Report Type: Report from Study
  Country: None (occurrence: US)
  Receive Date: 20190411
  Receipt Date: 20190614
  Transmission Date: 20190711
  Serious: Yes (Hospitalization, Other)
  Sender: FDA-Public Use
  Company Number: US-ABBVIE-19K-163-2731924-00

PATIENT
  Age: 61 Year
  Sex: Female

DRUGS (3)
  1. HUMIRA [Suspect]
     Active Substance: ADALIMUMAB
     Indication: RHEUMATOID ARTHRITIS
     Route: 058
     Dates: start: 20190315, end: 20190329
  2. HUMIRA [Suspect]
     Active Substance: ADALIMUMAB
     Route: 058
     Dates: start: 2019
  3. HUMIRA [Suspect]
     Active Substance: ADALIMUMAB
     Indication: PSORIATIC ARTHROPATHY
     Route: 058

REACTIONS (17)
  - Colitis [Unknown]
  - Haematocrit decreased [Unknown]
  - Haemoglobin decreased [Unknown]
  - Pain [Recovering/Resolving]
  - Influenza like illness [Recovered/Resolved]
  - Fatigue [Recovered/Resolved]
  - Mobility decreased [Unknown]
  - Diabetes mellitus [Unknown]
  - Joint stiffness [Recovering/Resolving]
  - Pain in extremity [Unknown]
  - Drug ineffective [Unknown]
  - Depression [Unknown]
  - Renal disorder [Unknown]
  - Arthralgia [Unknown]
  - Anxiety [Unknown]
  - Joint swelling [Recovering/Resolving]
  - Precancerous skin lesion [Unknown]

NARRATIVE: CASE EVENT DATE: 20190315
